FAERS Safety Report 8622662-5 (Version None)
Quarter: 2012Q3

REPORT INFORMATION
  Report Type: 
  Country: None (occurrence: None)
  Receive Date: 20120827
  Receipt Date: 20120816
  Transmission Date: 20120928
  Serious: Yes (Other)
  Sender: FDA-Public Use
  Company Number: CA-JNJFOC-20120808424

PATIENT
  Sex: Female
  Weight: 127 kg

DRUGS (2)
  1. REMICADE [Suspect]
     Indication: ANKYLOSING SPONDYLITIS
     Route: 042
     Dates: start: 20090101
  2. METFORMIN HCL [Concomitant]
     Route: 065

REACTIONS (1)
  - NEPHROLITHIASIS [None]
